FAERS Safety Report 9400021 (Version 2)
Quarter: 2013Q3

REPORT INFORMATION
  Report Type: Spontaneous
  Country: US (occurrence: US)
  Receive Date: 20130715
  Receipt Date: 20130819
  Transmission Date: 20140515
  Serious: Yes (Other)
  Sender: FDA-Public Use
  Company Number: US-PFIZER INC-2013204130

PATIENT
  Sex: Female

DRUGS (1)
  1. LYRICA [Suspect]
     Indication: FIBROMYALGIA
     Dosage: 75 MG, UNK

REACTIONS (9)
  - Porphyria non-acute [Unknown]
  - Impaired driving ability [Unknown]
  - Oedema mouth [Unknown]
  - Local swelling [Unknown]
  - Pruritus [Unknown]
  - Blister [Unknown]
  - Fatigue [Unknown]
  - Tremor [Unknown]
  - Psychomotor hyperactivity [Unknown]
